FAERS Safety Report 18005117 (Version 1)
Quarter: 2020Q3

REPORT INFORMATION
  Report Type: Spontaneous
  Country: US (occurrence: US)
  Receive Date: 20200709
  Receipt Date: 20200709
  Transmission Date: 20201103
  Serious: Yes (Other)
  Sender: FDA-Public Use
  Company Number: None

PATIENT
  Age: 62 Year
  Sex: Female
  Weight: 94.5 kg

DRUGS (8)
  1. METOPROLOL SUCCINATE 25 MG [Concomitant]
     Active Substance: METOPROLOL SUCCINATE
  2. ESOMEPRAZOLE 40 MG [Concomitant]
     Active Substance: ESOMEPRAZOLE
  3. GABAPENTIN 600 MG [Concomitant]
     Active Substance: GABAPENTIN
  4. VALTREX [Concomitant]
     Active Substance: VALACYCLOVIR HYDROCHLORIDE
  5. LORATADINE 10 MG [Concomitant]
     Active Substance: LORATADINE
  6. OXCARBAZEPINE 150 MG [Concomitant]
     Active Substance: OXCARBAZEPINE
  7. XARELTO [Concomitant]
     Active Substance: RIVAROXABAN
  8. PROLIA [Suspect]
     Active Substance: DENOSUMAB
     Indication: OSTEOPOROSIS
     Dosage: ?          OTHER FREQUENCY:EVERY 6 MONTHS;?
     Route: 058
     Dates: start: 20190901, end: 20200709

REACTIONS (1)
  - Urticaria [None]

NARRATIVE: CASE EVENT DATE: 20190901
